FAERS Safety Report 17767698 (Version 2)
Quarter: 2020Q2

REPORT INFORMATION
  Report Type: Spontaneous
  Country: BE (occurrence: BE)
  Receive Date: 20200511
  Receipt Date: 20200521
  Transmission Date: 20200714
  Serious: Yes (Death, Other)
  Sender: FDA-Public Use
  Company Number: NVSC2020BE127611

PATIENT
  Age: 1 Year
  Sex: Male
  Weight: 8 kg

DRUGS (1)
  1. TACROLIMUS. [Suspect]
     Active Substance: TACROLIMUS
     Indication: LIVER TRANSPLANT
     Dosage: 0.2 MG/KG BODY WEIGHT, ONCE DAILY
     Route: 048
     Dates: start: 20161026

REACTIONS (1)
  - Sepsis [Fatal]

NARRATIVE: CASE EVENT DATE: 20161128
